FAERS Safety Report 8405538-8 (Version None)
Quarter: 2012Q2

REPORT INFORMATION
  Report Type: 
  Country: None (occurrence: None)
  Receive Date: 20120604
  Receipt Date: 20120524
  Transmission Date: 20120825
  Serious: No
  Sender: FDA-Public Use
  Company Number: US-BIOGENIDEC-2012BI018488

PATIENT
  Age: 58 Year
  Sex: Female

DRUGS (6)
  1. ZANAFLEX [Concomitant]
     Indication: NECK PAIN
  2. ZANAFLEX [Concomitant]
     Indication: MUSCULOSKELETAL PAIN
  3. TRAMADOL HCL [Concomitant]
     Indication: MUSCULOSKELETAL PAIN
  4. TYSABRI [Suspect]
     Indication: MULTIPLE SCLEROSIS
     Route: 042
     Dates: start: 20120110
  5. LUNESTA [Concomitant]
     Indication: INSOMNIA
  6. TRAMADOL HCL [Concomitant]
     Indication: NECK PAIN

REACTIONS (2)
  - NAUSEA [None]
  - VOMITING [None]
